FAERS Safety Report 17164945 (Version 1)
Quarter: 2019Q4

REPORT INFORMATION
  Report Type: Spontaneous
  Country: FR (occurrence: FR)
  Receive Date: 20191217
  Receipt Date: 20191217
  Transmission Date: 20200122
  Serious: Yes (Life-Threatening)
  Sender: FDA-Public Use
  Company Number: FR-MYLANLABS-2019M1123229

PATIENT
  Age: 61 Year
  Sex: Male

DRUGS (5)
  1. SERESTA [Suspect]
     Active Substance: OXAZEPAM
     Indication: PRODUCT USED FOR UNKNOWN INDICATION
     Dosage: 300 MILLIGRAM, TOTAL
     Route: 048
     Dates: start: 20190701, end: 20190701
  2. QUETIAPINE. [Suspect]
     Active Substance: QUETIAPINE
     Indication: PRODUCT USED FOR UNKNOWN INDICATION
     Dosage: 1500 MILLIGRAM, TOTAL
     Route: 048
     Dates: start: 20190701, end: 20190701
  3. PAROXETINE. [Suspect]
     Active Substance: PAROXETINE
     Indication: PRODUCT USED FOR UNKNOWN INDICATION
     Dosage: 760 MILLIGRAM, TOTAL
     Route: 048
     Dates: start: 20190701, end: 20190701
  4. IRBESARTAN. [Suspect]
     Active Substance: IRBESARTAN
     Indication: PRODUCT USED FOR UNKNOWN INDICATION
     Dosage: 4500 MILLIGRAM, TOTAL
     Route: 048
     Dates: start: 20190701, end: 20190701
  5. BROMAZEPAM [Suspect]
     Active Substance: BROMAZEPAM
     Indication: PRODUCT USED FOR UNKNOWN INDICATION
     Dosage: 180 MILLIGRAM, TOTAL
     Route: 048
     Dates: start: 20190701, end: 20190701

REACTIONS (4)
  - Intentional overdose [Unknown]
  - Coma [Recovered/Resolved]
  - Hypotension [Recovered/Resolved]
  - Poisoning deliberate [Recovered/Resolved]

NARRATIVE: CASE EVENT DATE: 20190701
